FAERS Safety Report 21304574 (Version 1)
Quarter: 2022Q3

REPORT INFORMATION
  Report Type: Spontaneous
  Country: US (occurrence: None)
  Receive Date: 20220907
  Receipt Date: 20220907
  Transmission Date: 20221027
  Serious: No
  Sender: FDA-Public Use
  Company Number: US-ARIS GLOBAL-202108-1537

PATIENT
  Sex: Female

DRUGS (39)
  1. OXERVATE [Suspect]
     Active Substance: CENEGERMIN-BKBJ
     Indication: Neurotrophic keratopathy
     Route: 047
     Dates: start: 20210818
  2. ZINC [Concomitant]
     Active Substance: ZINC
  3. ZETIA [Concomitant]
     Active Substance: EZETIMIBE
  4. XYZAL [Concomitant]
     Active Substance: LEVOCETIRIZINE DIHYDROCHLORIDE
  5. XIIDRA [Concomitant]
     Active Substance: LIFITEGRAST
  6. XARELTO [Concomitant]
     Active Substance: RIVAROXABAN
  7. VITAMIN D [Concomitant]
     Active Substance: VITAMIN D NOS
  8. VITAMIN C [Concomitant]
     Active Substance: ASCORBIC ACID
  9. VITAMIN B-100 COMPLEX [Concomitant]
  10. TRELEGY ELLIPTA [Concomitant]
     Active Substance: FLUTICASONE FUROATE\UMECLIDINIUM BROMIDE\VILANTEROL TRIFENATATE
     Dosage: 100-62.5
  11. SINGULAIR [Concomitant]
     Active Substance: MONTELUKAST SODIUM
  12. SIMVASTATIN [Concomitant]
     Active Substance: SIMVASTATIN
  13. ROPINIROLE HYDROCHLORIDE [Concomitant]
     Active Substance: ROPINIROLE HYDROCHLORIDE
  14. REFRESH TEARS [Concomitant]
     Active Substance: CARBOXYMETHYLCELLULOSE SODIUM
  15. PROZAC [Concomitant]
     Active Substance: FLUOXETINE HYDROCHLORIDE
  16. PROVIGIL [Concomitant]
     Active Substance: MODAFINIL
  17. OXYBUTYNIN CHLORIDE [Concomitant]
     Active Substance: OXYBUTYNIN CHLORIDE
  18. NITROGLYCERIN [Concomitant]
     Active Substance: NITROGLYCERIN
  19. NOVOLOG [Concomitant]
     Active Substance: INSULIN ASPART
  20. MULTI-VITAMIN [Concomitant]
     Active Substance: .ALPHA.-TOCOPHEROL ACETATE, DL-\ASCORBIC ACID\CYANOCOBALAMIN\FLUORIDE ION\FOLIC ACID\NIACIN\PYRIDOXI
     Dosage: DAILY
  21. METOPROLOL SUCCINATE [Concomitant]
     Active Substance: METOPROLOL SUCCINATE
  22. METHOTREXATE [Concomitant]
     Active Substance: METHOTREXATE
  23. METFORMIN ER GASTRIC [Concomitant]
  24. MAGNESIUM [Concomitant]
     Active Substance: MAGNESIUM
  25. HYDROCHLOROTHIAZIDE\LOSARTAN [Concomitant]
     Active Substance: HYDROCHLOROTHIAZIDE\LOSARTAN
  26. OMEGA-3 ACIDS [Concomitant]
     Active Substance: OMEGA-3 FATTY ACIDS
     Dosage: 350-597 MG
  27. KLOR-CON [Concomitant]
     Active Substance: POTASSIUM CHLORIDE
     Dosage: 20 MEQ PACKET
  28. GABAPENTIN [Concomitant]
     Active Substance: GABAPENTIN
  29. DOXYCYCLINE HYCLATE [Concomitant]
     Active Substance: DOXYCYCLINE HYCLATE
  30. DEXILANT [Concomitant]
     Active Substance: DEXLANSOPRAZOLE
  31. EVOXAC [Concomitant]
     Active Substance: CEVIMELINE HYDROCHLORIDE
  32. BUSPIRONE HCL [Concomitant]
     Active Substance: BUSPIRONE HYDROCHLORIDE
  33. BEPREVE [Concomitant]
     Active Substance: BEPOTASTINE BESILATE
  34. BASAGLAR KWIKPEN [Concomitant]
     Active Substance: INSULIN GLARGINE
  35. BACLOFEN [Concomitant]
     Active Substance: BACLOFEN
  36. ASPIRIN [Concomitant]
     Active Substance: ASPIRIN
  37. ALBUTEROL SULFATE [Concomitant]
     Active Substance: ALBUTEROL SULFATE
  38. ACYCLOVIR [Concomitant]
     Active Substance: ACYCLOVIR
  39. ABILIFY [Concomitant]
     Active Substance: ARIPIPRAZOLE

REACTIONS (2)
  - Wrong technique in product usage process [Unknown]
  - Eye pain [Unknown]
